FAERS Safety Report 4267256-X (Version None)
Quarter: 2004Q1

REPORT INFORMATION
  Report Type: 
  Country: None (occurrence: None)
  Receive Date: 20040107
  Receipt Date: 20040105
  Transmission Date: 20041129
  Serious: Yes (Hospitalization, Other)
  Sender: FDA-Public Use
  Company Number: FRWYE490405JAN04

PATIENT
  Age: 82 Year
  Sex: Male

DRUGS (7)
  1. EFFEXOR XP (VENLAFAXINE HYDROCHLORIDE, CAPSULE, EXTENDED RELEASE, 0) [Suspect]
     Dosage: 37.5 MG 1X PER 1 DAY ORAL
     Route: 048
     Dates: start: 20030915, end: 20030917
  2. EFFEXOR XP (VENLAFAXINE HYDROCHLORIDE, CAPSULE, EXTENDED RELEASE, 0) [Suspect]
     Dosage: 37.5 MG 1X PER 1 DAY ORAL
     Route: 048
     Dates: start: 20030918, end: 20031030
  3. CORDARONE [Suspect]
     Dosage: ORAL
     Route: 048
     Dates: start: 20010402, end: 20031028
  4. PREDNISONE [Concomitant]
  5. PREVISCAN (FLUINDIONE) [Concomitant]
  6. NITROGLYCERIN [Concomitant]
  7. OMEPRAZOLE [Concomitant]

REACTIONS (1)
  - HYPOGLYCAEMIA [None]
